FAERS Safety Report 10143503 (Version 1)
Quarter: 2014Q2

REPORT INFORMATION
  Report Type: Spontaneous
  Country: JP (occurrence: JP)
  Receive Date: 20140430
  Receipt Date: 20140430
  Transmission Date: 20141212
  Serious: Yes (Death)
  Sender: FDA-Public Use
  Company Number: PHHY2014JP052047

PATIENT
  Age: 96 Year
  Sex: Female

DRUGS (2)
  1. EXFORGE [Suspect]
     Indication: HYPERTENSION
     Dosage: 1 DF, DAILY
     Route: 048
     Dates: end: 201403
  2. AZILVA [Suspect]
     Dosage: UNK UKN, UNK
     Route: 048
     Dates: start: 201403

REACTIONS (1)
  - Death [Fatal]
